FAERS Safety Report 23417287 (Version 3)
Quarter: 2024Q1

REPORT INFORMATION
  Report Type: Report from Study
  Country: CA (occurrence: CA)
  Receive Date: 20240118
  Receipt Date: 20240221
  Transmission Date: 20240410
  Serious: Yes (Other)
  Sender: FDA-Public Use
  Company Number: CA-AMGEN-CANSL2022125241

PATIENT
  Age: 65 Year
  Sex: Female

DRUGS (5)
  1. AVSOLA [Suspect]
     Active Substance: INFLIXIMAB-AXXQ
     Indication: Crohn^s disease
     Dosage: 456 MILLIGRAM
     Route: 065
     Dates: start: 20220105
  2. AVSOLA [Suspect]
     Active Substance: INFLIXIMAB-AXXQ
     Dosage: 460 MILLIGRAM
     Route: 065
  3. AVSOLA [Suspect]
     Active Substance: INFLIXIMAB-AXXQ
     Dosage: 460 MILLIGRAM, Q7WK
     Route: 065
  4. AVSOLA [Suspect]
     Active Substance: INFLIXIMAB-AXXQ
     Dosage: 5 MILLIGRAM PER MILLILITRE, Q7WK
     Route: 065
  5. Liquid iron [Concomitant]
     Dosage: UNK, QD
     Route: 065

REACTIONS (4)
  - Omphalitis [Unknown]
  - Crohn^s disease [Recovered/Resolved]
  - Anaemia [Unknown]
  - Off label use [Unknown]

NARRATIVE: CASE EVENT DATE: 20220105
